FAERS Safety Report 4839828-2 (Version None)
Quarter: 2005Q4

REPORT INFORMATION
  Report Type: 
  Country: None (occurrence: None)
  Receive Date: 20051125
  Receipt Date: 20051110
  Transmission Date: 20060501
  Serious: Yes (Hospitalization, Other)
  Sender: FDA-Public Use
  Company Number: GBWYE050612OCT05

PATIENT
  Age: 35 Year
  Sex: Female

DRUGS (3)
  1. EFFEXOR [Suspect]
     Dosage: OVERDOSED ON 3150 MG
     Route: 048
     Dates: start: 20051011, end: 20051011
  2. DIAZEPAM [Suspect]
     Dosage: OVERDOSED ON 5 MG TABLETS (21 TABLETS)
     Route: 048
     Dates: start: 20051011, end: 20051011
  3. ETHANOL (ETHANOL) [Suspect]
     Dosage: 1/2 BOTTLE
     Route: 048
     Dates: start: 20051011, end: 20051011

REACTIONS (12)
  - ABASIA [None]
  - ALCOHOL WITHDRAWAL SYNDROME [None]
  - CONFUSIONAL STATE [None]
  - GAIT DISTURBANCE [None]
  - HALLUCINATION, VISUAL [None]
  - INCONTINENCE [None]
  - INTENTIONAL OVERDOSE [None]
  - MUSCULOSKELETAL STIFFNESS [None]
  - MYDRIASIS [None]
  - TACHYCARDIA [None]
  - TREMOR [None]
  - VOMITING [None]
